FAERS Safety Report 5366956-8 (Version None)
Quarter: 2007Q2

REPORT INFORMATION
  Report Type: 
  Country: None (occurrence: None)
  Receive Date: 20070622
  Receipt Date: 20070615
  Transmission Date: 20071010
  Serious: Yes (Other)
  Sender: FDA-Public Use
  Company Number: HQWYE278111APR07

PATIENT
  Sex: Female
  Weight: 110.32 kg

DRUGS (2)
  1. EFFEXOR XR [Suspect]
     Indication: ANXIETY
     Route: 048
     Dates: start: 20070306
  2. EFFEXOR XR [Suspect]
     Indication: DEPRESSION

REACTIONS (7)
  - ANXIETY [None]
  - CONDITION AGGRAVATED [None]
  - DECREASED APPETITE [None]
  - DISTURBANCE IN ATTENTION [None]
  - INSOMNIA [None]
  - SELF-INJURIOUS IDEATION [None]
  - VIOLENT IDEATION [None]
